FAERS Safety Report 8085350-2 (Version None)
Quarter: 2012Q1

REPORT INFORMATION
  Report Type: 
  Country: None (occurrence: None)
  Receive Date: 20120128
  Receipt Date: 20110524
  Transmission Date: 20120608
  Serious: No
  Sender: FDA-Public Use
  Company Number: US-ABBOTT-10P-163-0652339-00

PATIENT
  Sex: Female

DRUGS (2)
  1. HUMIRA [Suspect]
     Indication: CROHN'S DISEASE
     Dates: start: 20100101
  2. NASONEX [Concomitant]
     Indication: HYPERSENSITIVITY

REACTIONS (3)
  - WOUND HAEMORRHAGE [None]
  - PSORIASIS [None]
  - DERMATITIS PSORIASIFORM [None]
